FAERS Safety Report 14948849 (Version 2)
Quarter: 2021Q2

REPORT INFORMATION
  Report Type: Report from Study
  Country: FR (occurrence: FR)
  Receive Date: 20180529
  Receipt Date: 20210621
  Transmission Date: 20210716
  Serious: Yes (Hospitalization)
  Sender: FDA-Public Use
  Company Number: FR-SHIRE-FR201819349

PATIENT
  Age: 47 Year
  Sex: Male
  Weight: 66 kg

DRUGS (16)
  1. TEDUGLUTIDE [Suspect]
     Active Substance: TEDUGLUTIDE
     Indication: SHORT-BOWEL SYNDROME
     Dosage: 0.05 MG/KG, DOSAGE PER WEEK 7
     Route: 065
     Dates: start: 20160324
  2. MITOSYL [Concomitant]
     Indication: ANORECTAL DISCOMFORT
  3. TEDUGLUTIDE [Suspect]
     Active Substance: TEDUGLUTIDE
     Dosage: 3.3 MILLIGRAM, (0.05MG/KG), QD
     Route: 065
     Dates: start: 20160324, end: 20181205
  4. QUESTRAN [Concomitant]
     Active Substance: CHOLESTYRAMINE
     Indication: ANORECTAL DISCOMFORT
  5. TEDUGLUTIDE [Suspect]
     Active Substance: TEDUGLUTIDE
     Dosage: 3.3 MILLIGRAM, (0.05MG/KG), QD
     Route: 065
     Dates: start: 20160324, end: 20181205
  6. INNOHEP [Concomitant]
     Active Substance: TINZAPARIN SODIUM
     Indication: THROMBOSIS
     Dosage: 8000 UNITS, QD
     Route: 058
     Dates: start: 20190109
  7. TEDUGLUTIDE [Suspect]
     Active Substance: TEDUGLUTIDE
     Indication: SHORT-BOWEL SYNDROME
     Dosage: 0.05 MG/KG, DOSAGE PER WEEK 7
     Route: 065
     Dates: start: 20160324
  8. TEDUGLUTIDE [Suspect]
     Active Substance: TEDUGLUTIDE
     Indication: SHORT-BOWEL SYNDROME
     Dosage: 0.05 MG/KG, DOSAGE PER WEEK 7
     Route: 065
     Dates: start: 20160324
  9. TEDUGLUTIDE [Suspect]
     Active Substance: TEDUGLUTIDE
     Dosage: 3.3 MILLIGRAM, (0.05MG/KG), QD
     Route: 065
     Dates: start: 20160324, end: 20181205
  10. TEDUGLUTIDE [Suspect]
     Active Substance: TEDUGLUTIDE
     Dosage: 3.3 MILLIGRAM, (0.05MG/KG), QD
     Route: 065
     Dates: start: 20160324, end: 20181205
  11. TIAPRIDAL [Concomitant]
     Active Substance: TIAPRIDE HYDROCHLORIDE
     Indication: ANXIETY
     Dosage: 100 MILLIGRAM
     Route: 042
     Dates: start: 20190109
  12. TEDUGLUTIDE [Suspect]
     Active Substance: TEDUGLUTIDE
     Indication: SHORT-BOWEL SYNDROME
     Dosage: 0.05 MG/KG, DOSAGE PER WEEK 7
     Route: 065
     Dates: start: 20160324
  13. IMODIUM [Concomitant]
     Active Substance: LOPERAMIDE HYDROCHLORIDE
     Indication: SHORT-BOWEL SYNDROME
  14. CALCIUM CITRATE [Concomitant]
     Active Substance: CALCIUM CITRATE
     Indication: SUPPLEMENTATION THERAPY
  15. EUPANTOL [Concomitant]
     Active Substance: PANTOPRAZOLE SODIUM
     Indication: ABDOMINAL PAIN
     Dosage: 40 MILLIGRAM, QD
     Route: 042
     Dates: start: 20190109
  16. CHOLURSO [Concomitant]
     Active Substance: URSODIOL
     Indication: LIVER DISORDER
     Dosage: 250 MILLIGRAM, QD
     Route: 048
     Dates: start: 20190109

REACTIONS (1)
  - Underweight [Not Recovered/Not Resolved]

NARRATIVE: CASE EVENT DATE: 201712
